FAERS Safety Report 8220430-X (Version None)
Quarter: 2012Q1

REPORT INFORMATION
  Report Type: 
  Country: None (occurrence: None)
  Receive Date: 20120316
  Receipt Date: 20120228
  Transmission Date: 20120608
  Serious: Yes (Death, Other)
  Sender: FDA-Public Use
  Company Number: HA12-052-AE

PATIENT
  Age: 59 Year
  Sex: Male
  Weight: 91.2 kg

DRUGS (5)
  1. CELECOXIB, IBUPROFEN, PLACEBO [Suspect]
     Indication: OSTEOARTHRITIS
     Dosage: HIGH DOSER, TID, ORAL
     Route: 048
     Dates: start: 20081205
  2. CELECOXIB, IBUPROFEN, PLACEBO [Suspect]
     Indication: RHEUMATOID ARTHRITIS
     Dosage: HIGH DOSER, TID, ORAL
     Route: 048
     Dates: start: 20081205
  3. NAPROXEN [Suspect]
     Indication: OSTEOARTHRITIS
     Dosage: HIGH DOSE, TID, ORAL
     Route: 048
     Dates: start: 20081205
  4. NAPROXEN [Suspect]
     Indication: RHEUMATOID ARTHRITIS
     Dosage: HIGH DOSE, TID, ORAL
     Route: 048
     Dates: start: 20081205
  5. NEXIUM [Concomitant]

REACTIONS (2)
  - ARTERIOSCLEROSIS [None]
  - LOSS OF CONSCIOUSNESS [None]
